FAERS Safety Report 5149229-8 (Version None)
Quarter: 2006Q4

REPORT INFORMATION
  Report Type: 
  Country: None (occurrence: None)
  Receive Date: 20061113
  Receipt Date: 20050919
  Transmission Date: 20070319
  Serious: No
  Sender: FDA-Public Use
  Company Number: 418271

PATIENT
  Sex: Female

DRUGS (7)
  1. COREG [Suspect]
     Dosage: 8TAB PER DAY
     Route: 048
  2. METFORMIN [Concomitant]
  3. INDAPAMIDE [Concomitant]
  4. FOLIC ACID [Concomitant]
  5. DIGITEK [Concomitant]
  6. GLIPIZIDE [Concomitant]
  7. CAPTOPRIL [Concomitant]

REACTIONS (3)
  - DIZZINESS [None]
  - OVERDOSE [None]
  - SEDATION [None]
